FAERS Safety Report 7765013-0 (Version None)
Quarter: 2011Q3

REPORT INFORMATION
  Report Type: 
  Country: None (occurrence: None)
  Receive Date: 20110920
  Receipt Date: 20110920
  Transmission Date: 20111222
  Serious: Yes (Hospitalization)
  Sender: FDA-Public Use
  Company Number: None

PATIENT
  Sex: Male
  Weight: 60.9 kg

DRUGS (2)
  1. CISPLATIN [Suspect]
     Dosage: 130 MG
     Dates: end: 20080304
  2. TAXOTERE [Suspect]
     Dosage: 130 MG
     Dates: end: 20080304

REACTIONS (11)
  - DEHYDRATION [None]
  - HAEMOGLOBIN DECREASED [None]
  - BLOOD CALCIUM DECREASED [None]
  - BLOOD SODIUM DECREASED [None]
  - BLOOD POTASSIUM DECREASED [None]
  - PLATELET COUNT DECREASED [None]
  - BLOOD GLUCOSE DECREASED [None]
  - NAUSEA [None]
  - HYPOTENSION [None]
  - APHAGIA [None]
  - BLOOD MAGNESIUM DECREASED [None]
